FAERS Safety Report 21039216 (Version 1)
Quarter: 2022Q3

REPORT INFORMATION
  Report Type: Spontaneous
  Country: US (occurrence: US)
  Receive Date: 20220704
  Receipt Date: 20220704
  Transmission Date: 20221027
  Serious: Yes (Other)
  Sender: FDA-Public Use
  Company Number: US-PHARMACOVIGILANCE-US-KAD-22-00604

PATIENT
  Age: 70 Year
  Sex: Male

DRUGS (1)
  1. REZUROCK [Suspect]
     Active Substance: BELUMOSUDIL
     Indication: Chronic graft versus host disease
     Route: 065

REACTIONS (4)
  - Chronic graft versus host disease in lung [Unknown]
  - Condition aggravated [Unknown]
  - Pleural effusion [Unknown]
  - Dyspnoea [Unknown]
